FAERS Safety Report 6767593-0 (Version None)
Quarter: 2010Q2

REPORT INFORMATION
  Report Type: 
  Country: None (occurrence: None)
  Receive Date: 20100614
  Receipt Date: 20100609
  Transmission Date: 20101027
  Serious: Yes (Death)
  Sender: FDA-Public Use
  Company Number: PHHY2010VE37555

PATIENT
  Sex: Male

DRUGS (1)
  1. SANDOSTATIN [Suspect]
     Indication: NEUROENDOCRINE TUMOUR
     Dosage: UNK
     Dates: start: 20090817

REACTIONS (1)
  - LUNG NEOPLASM MALIGNANT [None]
